FAERS Safety Report 20727967 (Version 2)
Quarter: 2022Q2

REPORT INFORMATION
  Report Type: Spontaneous
  Country: CA (occurrence: None)
  Receive Date: 20220419
  Receipt Date: 20220620
  Transmission Date: 20220721
  Serious: Yes (Other)
  Sender: FDA-Public Use
  Company Number: CA-ROCHE-3075183

PATIENT
  Age: 61 Year
  Sex: Male

DRUGS (13)
  1. CYCLOPHOSPHAMIDE [Suspect]
     Active Substance: CYCLOPHOSPHAMIDE
     Indication: Immune thrombocytopenia
     Route: 065
  2. METHYLPREDNISOLONE [Suspect]
     Active Substance: METHYLPREDNISOLONE
     Indication: Thrombocytopenic purpura
     Route: 042
  3. ELTROMBOPAG OLAMINE [Suspect]
     Active Substance: ELTROMBOPAG OLAMINE
     Indication: Immune thrombocytopenia
     Route: 048
  4. ELTROMBOPAG OLAMINE [Suspect]
     Active Substance: ELTROMBOPAG OLAMINE
     Route: 065
  5. ELTROMBOPAG OLAMINE [Suspect]
     Active Substance: ELTROMBOPAG OLAMINE
     Route: 048
  6. ELTROMBOPAG OLAMINE [Suspect]
     Active Substance: ELTROMBOPAG OLAMINE
     Route: 048
  7. RITUXIMAB [Suspect]
     Active Substance: RITUXIMAB
     Indication: Immune thrombocytopenia
     Route: 065
  8. ELTROMBOPAG [Suspect]
     Active Substance: ELTROMBOPAG
     Indication: Immune thrombocytopenia
     Route: 048
  9. ELTROMBOPAG [Suspect]
     Active Substance: ELTROMBOPAG
     Route: 048
  10. ELTROMBOPAG [Suspect]
     Active Substance: ELTROMBOPAG
     Route: 048
  11. ELTROMBOPAG [Suspect]
     Active Substance: ELTROMBOPAG
     Route: 065
  12. ELTROMBOPAG [Suspect]
     Active Substance: ELTROMBOPAG
     Route: 048
  13. ELTROMBOPAG [Suspect]
     Active Substance: ELTROMBOPAG
     Route: 048

REACTIONS (5)
  - Illness [Not Recovered/Not Resolved]
  - Platelet count decreased [Not Recovered/Not Resolved]
  - Platelet count increased [Not Recovered/Not Resolved]
  - Therapy non-responder [Not Recovered/Not Resolved]
  - Off label use [Unknown]
